FAERS Safety Report 12776283 (Version 1)
Quarter: 2016Q3

REPORT INFORMATION
  Report Type: Spontaneous
  Country: US (occurrence: US)
  Receive Date: 20160923
  Receipt Date: 20160923
  Transmission Date: 20161109
  Serious: Yes (Hospitalization, Other)
  Sender: FDA-Public Use
  Company Number: US-MAYNE PHARMA INC.-2015MYN000043

PATIENT
  Age: 21 Year
  Sex: Male

DRUGS (2)
  1. OXYMORPHONE [Suspect]
     Active Substance: OXYMORPHONE
     Dosage: UNK
  2. OXYCODONE HYDROCHLORIDE. [Suspect]
     Active Substance: OXYCODONE HYDROCHLORIDE
     Dosage: UNK
     Dates: start: 2013

REACTIONS (7)
  - Pneumomediastinum [Recovered/Resolved]
  - Hallucination [Recovering/Resolving]
  - White blood cell count increased [Recovering/Resolving]
  - Oesophageal perforation [Recovered/Resolved]
  - Rhabdomyolysis [Unknown]
  - Withdrawal syndrome [Recovered/Resolved]
  - Acute kidney injury [Recovered/Resolved]
